FAERS Safety Report 9348376 (Version 1)
Quarter: 2013Q2

REPORT INFORMATION
  Report Type: Spontaneous
  Country: US (occurrence: US)
  Receive Date: 20130614
  Receipt Date: 20130614
  Transmission Date: 20140414
  Serious: No
  Sender: FDA-Public Use
  Company Number: US-PFIZER INC-2013177170

PATIENT
  Age: 65 Year
  Sex: Female
  Weight: 58.96 kg

DRUGS (3)
  1. CELEBREX [Suspect]
     Indication: ARTHRITIS
     Dosage: 100 MG, DAILY
  2. CELEBREX [Suspect]
     Dosage: 200 MG, DAILY
  3. KEPPRA [Concomitant]
     Indication: CONVULSION
     Dosage: 750 MG, DAILY

REACTIONS (1)
  - Drug ineffective [Unknown]
